FAERS Safety Report 8338097-9 (Version None)
Quarter: 2012Q2

REPORT INFORMATION
  Report Type: 
  Country: None (occurrence: None)
  Receive Date: 20120504
  Receipt Date: 20120427
  Transmission Date: 20120825
  Serious: Yes (Hospitalization, Other)
  Sender: FDA-Public Use
  Company Number: PHFR2012GB001755

PATIENT
  Sex: Female

DRUGS (2)
  1. CLOZARIL [Suspect]
     Indication: SCHIZOPHRENIA
     Route: 048
     Dates: start: 20040803
  2. CLOZARIL [Suspect]
     Dosage: 350 MG, DAILY
     Route: 048
     Dates: start: 20120313

REACTIONS (6)
  - CHOLECYSTITIS INFECTIVE [None]
  - ENDOCARDITIS [None]
  - MYOCLONUS [None]
  - PYREXIA [None]
  - CHOLELITHIASIS [None]
  - CHOLECYSTITIS [None]
